FAERS Safety Report 9286753 (Version 1)
Quarter: 2013Q2

REPORT INFORMATION
  Report Type: Spontaneous
  Country: GB (occurrence: None)
  Receive Date: 20130509
  Receipt Date: 20130509
  Transmission Date: 20140414
  Serious: Yes (Hospitalization)
  Sender: FDA-Public Use
  Company Number: INT_00255_2013

PATIENT
  Age: 51 Year
  Sex: Female

DRUGS (10)
  1. MEROPENEM [Suspect]
     Indication: PRODUCT USED FOR UNKNOWN INDICATION
     Dosage: INTRAVENOUS (NOT OTHERWISE SPECIFIED)?
     Route: 042
     Dates: start: 20130328, end: 20130412
  2. CIPROFLOXACIN [Suspect]
     Indication: PRODUCT USED FOR UNKNOWN INDICATION
     Dosage: INTRAVENOUS (NOT OTHERWISE SPECIFIED)?
     Route: 042
     Dates: start: 20130328, end: 20130412
  3. L-CARBOCYSTEINE (UNKNOWN) [Concomitant]
  4. CLEXANE (UNKNOWN) [Concomitant]
  5. FLUCOMAZOLE (UNKNOWN) [Concomitant]
  6. FLUOXETINE HYDROCHLORIDE (UNKNOWN) [Concomitant]
  7. GANFORT (UNKNOWN) [Concomitant]
  8. NASONEX (UNKNOWN) [Concomitant]
  9. OMEPRAZOLE (UNKNOWN) [Concomitant]
  10. PREDNISOLONE (UNKNOWN) [Concomitant]

REACTIONS (7)
  - Chest pain [None]
  - Dyspnoea [None]
  - Wheezing [None]
  - Product deposit [None]
  - Pain in extremity [None]
  - Back pain [None]
  - Neck pain [None]
